FAERS Safety Report 7738159-0 (Version None)
Quarter: 2011Q3

REPORT INFORMATION
  Report Type: 
  Country: None (occurrence: None)
  Receive Date: 20110908
  Receipt Date: 20110823
  Transmission Date: 20111222
  Serious: No
  Sender: FDA-Public Use
  Company Number: US-B.I. PHARMACEUTICALS,INC./RIDGEFIELD-2011-BP-08770BP

PATIENT
  Sex: Female

DRUGS (34)
  1. BENICAR HCT [Concomitant]
     Indication: HYPERTENSION
     Route: 048
  2. LASIX [Concomitant]
     Indication: HYPERTENSION
  3. ZOFRAN [Concomitant]
     Dosage: 4 MG
  4. RESTASIS [Concomitant]
  5. CALCIUM CARBONATE [Concomitant]
     Route: 048
  6. PRADAXA [Suspect]
     Indication: TRANSIENT ISCHAEMIC ATTACK
  7. NEURONTIN [Concomitant]
     Indication: LIMB INJURY
     Dosage: 300 MG
     Route: 048
  8. POTASSIUM [Concomitant]
     Indication: ATRIAL FIBRILLATION
     Dosage: 20 MG
     Route: 048
  9. MUCINEX [Concomitant]
     Indication: NASAL CONGESTION
     Route: 048
  10. FLEXERIL [Concomitant]
     Dosage: 10 MG
  11. LEVOTHYROXINE SODIUM [Concomitant]
     Indication: THYROID DISORDER
     Dosage: 50 MCG
     Route: 048
  12. AMITRIPTYLINE HCL [Concomitant]
     Indication: MIGRAINE
     Dosage: 25 MG
     Route: 048
  13. LASIX [Concomitant]
     Indication: FLUID RETENTION
     Dosage: 40 MG
     Route: 048
  14. AGGRENOX [Concomitant]
  15. LUTEIN [Concomitant]
     Dosage: 6 MG
  16. ALPHAGAN [Concomitant]
     Indication: GLAUCOMA
  17. COMBIVENT [Concomitant]
     Route: 055
  18. HYDROCODONE BITARTRATE AND ACETAMINOPHEN [Concomitant]
  19. LOMOTIL [Concomitant]
  20. PRADAXA [Suspect]
     Indication: PROTEIN S DEFICIENCY
     Dosage: 300 MG
     Route: 048
     Dates: start: 20110301
  21. PRADAXA [Suspect]
     Indication: CEREBROVASCULAR ACCIDENT
  22. VIT B12 [Concomitant]
     Indication: VITAMIN B12 DEFICIENCY
  23. LEVOTHYROXINE SODIUM [Concomitant]
     Indication: HYPOTHYROIDISM
  24. FUROSEMIDE [Concomitant]
     Dosage: 40 MG
  25. NEXIUM [Concomitant]
     Indication: GASTROOESOPHAGEAL REFLUX DISEASE
     Dosage: 40 MG
     Route: 048
  26. IRRITABLE BOWEL SYNDROME CAPSULE [Concomitant]
  27. MIACALCIUM [Concomitant]
  28. SUMATRIPTAN SUCCINAT [Concomitant]
     Dosage: 100 MG
  29. SIMVASTATIN [Concomitant]
     Indication: BLOOD CHOLESTEROL INCREASED
     Dosage: 20 MG
     Route: 048
  30. OSCAL [Concomitant]
  31. APAP/BUTALBITAL/CAFF [Concomitant]
     Indication: HEADACHE
  32. VOLTAREN [Concomitant]
  33. PRADAXA [Suspect]
     Indication: ATRIAL FIBRILLATION
  34. ZOLOFT [Concomitant]
     Indication: DEPRESSION
     Dosage: 150 MG
     Route: 048

REACTIONS (5)
  - PARAESTHESIA [None]
  - PARAESTHESIA ORAL [None]
  - HYPOAESTHESIA ORAL [None]
  - HYPOAESTHESIA [None]
  - ASTHENIA [None]
